FAERS Safety Report 6204006-1 (Version None)
Quarter: 2009Q2

REPORT INFORMATION
  Report Type: 
  Country: None (occurrence: None)
  Receive Date: 20090518
  Receipt Date: 20090212
  Transmission Date: 20091009
  Serious: No
  Sender: FDA-Public Use
  Company Number: WAES 0902USA02076

PATIENT
  Age: 74 Year
  Sex: Female
  Weight: 60.3284 kg

DRUGS (10)
  1. JANUVIA [Suspect]
     Indication: DIABETES MELLITUS
     Dosage: 100 MG/DAILY/PO
     Route: 048
     Dates: start: 20080901, end: 20090311
  2. CALTRATE [Concomitant]
  3. CENTRUM SILVER [Concomitant]
  4. CRESTOR [Concomitant]
  5. GLUCOTROL [Concomitant]
  6. GLUMETZA [Concomitant]
  7. HYZAAR [Concomitant]
  8. GLUCOSAMINE [Concomitant]
  9. OMEPRAZOLE [Concomitant]
  10. VITAMINS (UNSPECIFIED) [Concomitant]

REACTIONS (4)
  - ERYTHEMA [None]
  - MEDICATION RESIDUE [None]
  - PARAESTHESIA [None]
  - PRODUCT QUALITY ISSUE [None]
